FAERS Safety Report 5125300-1 (Version None)
Quarter: 2006Q4

REPORT INFORMATION
  Report Type: 
  Country: None (occurrence: None)
  Receive Date: 20061006
  Receipt Date: 20060929
  Transmission Date: 20070319
  Serious: Yes (Other)
  Sender: FDA-Public Use
  Company Number: 2006118223

PATIENT
  Age: 79 Year
  Sex: Female
  Weight: 54.4316 kg

DRUGS (6)
  1. ZOLOFT [Suspect]
     Indication: DEPRESSION
     Dosage: 1 MG (1 MG, 1 IN 1 D)
  2. NORVASC [Concomitant]
  3. ALPRAZOLAM [Concomitant]
  4. METOPROLOL TARTRATE [Concomitant]
  5. ALL  OTHER THERAPEUTIC PRODUCTS (ALL OTHER THERAPEUTIC PRODUCTS) [Concomitant]
  6. COUMADIN [Concomitant]

REACTIONS (5)
  - BLOOD PRESSURE ABNORMAL [None]
  - HEART RATE ABNORMAL [None]
  - LUNG CARCINOMA CELL TYPE UNSPECIFIED RECURRENT [None]
  - OESOPHAGEAL NEOPLASM [None]
  - ORAL INTAKE REDUCED [None]
